FAERS Safety Report 7911672-9 (Version None)
Quarter: 2011Q4

REPORT INFORMATION
  Report Type: 
  Country: None (occurrence: None)
  Receive Date: 20111109
  Receipt Date: 20111026
  Transmission Date: 20120403
  Serious: Yes (Hospitalization, Other)
  Sender: FDA-Public Use
  Company Number: TPA2011A04774

PATIENT
  Age: 6 Decade
  Sex: Male
  Weight: 97.7502 kg

DRUGS (4)
  1. METFORMIN HCL [Concomitant]
  2. ACTOS [Suspect]
     Indication: TYPE 2 DIABETES MELLITUS
     Dosage: 40 MG, 1 IN 1 D, PER ORAL
     Route: 048
     Dates: start: 20080401, end: 20101001
  3. GLIMEPIRIDE [Concomitant]
  4. JANUVIA [Concomitant]

REACTIONS (2)
  - RENAL CANCER [None]
  - BLADDER TRANSITIONAL CELL CARCINOMA [None]
